FAERS Safety Report 17169032 (Version 1)
Quarter: 2019Q4

REPORT INFORMATION
  Report Type: Spontaneous
  Country: NL (occurrence: SE)
  Receive Date: 20191218
  Receipt Date: 20191218
  Transmission Date: 20200122
  Serious: Yes (Hospitalization)
  Sender: FDA-Public Use
  Company Number: SE-BAYER-2019-225219

PATIENT
  Sex: Female

DRUGS (4)
  1. CLARITINE 10 MG [Suspect]
     Active Substance: LORATADINE
     Dosage: 23 ST
     Route: 048
     Dates: start: 20190310, end: 20190310
  2. OXASCAND [Suspect]
     Active Substance: OXAZEPAM
     Dosage: 60 ST
     Route: 048
     Dates: start: 20190310, end: 20190310
  3. CETIRIZINE [Suspect]
     Active Substance: CETIRIZINE HYDROCHLORIDE
     Dosage: 10 ST
     Route: 048
     Dates: start: 20190310, end: 20190310
  4. PROPAVAN [Suspect]
     Active Substance: PROPIOMAZINE
     Dosage: 60 ST
     Route: 048
     Dates: start: 20190310, end: 20190310

REACTIONS (2)
  - Intentional overdose [Unknown]
  - Intentional self-injury [Unknown]

NARRATIVE: CASE EVENT DATE: 20190310
